FAERS Safety Report 25705678 (Version 5)
Quarter: 2025Q3

REPORT INFORMATION
  Report Type: Report from Study
  Country: US (occurrence: US)
  Receive Date: 20250820
  Receipt Date: 20250922
  Transmission Date: 20251020
  Serious: Yes (Hospitalization, Other)
  Sender: ALEXION PHARMACEUTICALS
  Company Number: US-AstraZeneca-CH-00930631A

PATIENT
  Sex: Male

DRUGS (1)
  1. ULTOMIRIS [Suspect]
     Active Substance: RAVULIZUMAB-CWVZ
     Route: 065

REACTIONS (6)
  - Diabetes mellitus [Unknown]
  - Cardiac disorder [Unknown]
  - Visual impairment [Unknown]
  - Lumbar vertebral fracture [Unknown]
  - Rehabilitation therapy [Unknown]
  - Fall [Unknown]

NARRATIVE: CASE EVENT DATE: 20250814
